FAERS Safety Report 7318386-7 (Version None)
Quarter: 2011Q1

REPORT INFORMATION
  Report Type: 
  Country: None (occurrence: None)
  Receive Date: 20110218
  Receipt Date: 20110218
  Transmission Date: 20110831
  Serious: No
  Sender: FDA-Public Use
  Company Number: None

PATIENT

DRUGS (5)
  1. TAXOL [Suspect]
     Dosage: 105 MG
  2. CISPLATIN [Suspect]
     Dosage: MG
     Dates: end: 20110215
  3. ERBITUX [Suspect]
     Dosage: 525 MG
     Dates: end: 20110215
  4. LISINOPRIL [Concomitant]
  5. DOXYCYCLINE [Concomitant]

REACTIONS (2)
  - PYREXIA [None]
  - INFECTION [None]
